FAERS Safety Report 9702732 (Version 2)
Quarter: 2013Q4

REPORT INFORMATION
  Report Type: Report from Study
  Country: CA (occurrence: CA)
  Receive Date: 20131121
  Receipt Date: 20131218
  Transmission Date: 20140711
  Serious: Yes (Death, Hospitalization, Other)
  Sender: FDA-Public Use
  Company Number: CA-ABBVIE-13P-028-1170831-00

PATIENT
  Sex: Male
  Weight: 97.61 kg

DRUGS (5)
  1. LUPRON DEPOT [Suspect]
     Indication: PRODUCT USED FOR UNKNOWN INDICATION
     Dates: start: 20120327
  2. LIPITOR [Concomitant]
     Indication: PRODUCT USED FOR UNKNOWN INDICATION
     Dates: start: 2003, end: 20130205
  3. METFORMIN [Concomitant]
     Indication: PRODUCT USED FOR UNKNOWN INDICATION
     Dates: start: 2003, end: 20130205
  4. COVERSYL [Concomitant]
     Indication: PRODUCT USED FOR UNKNOWN INDICATION
     Dosage: 4/125 MG
     Dates: start: 2003, end: 20130205
  5. ASPIRIN [Concomitant]
     Indication: PRODUCT USED FOR UNKNOWN INDICATION
     Dates: start: 2003, end: 20130205

REACTIONS (6)
  - Colon cancer [Fatal]
  - Neoplasm malignant [Fatal]
  - Large intestinal obstruction [Unknown]
  - Disease complication [Unknown]
  - Prostate cancer metastatic [Unknown]
  - Weight decreased [Unknown]
